FAERS Safety Report 10048597 (Version 4)
Quarter: 2014Q3

REPORT INFORMATION
  Report Type: Spontaneous
  Country: US (occurrence: US)
  Receive Date: 20140331
  Receipt Date: 20140926
  Transmission Date: 20150326
  Serious: Yes (Hospitalization, Other)
  Sender: FDA-Public Use
  Company Number: US-009507513-1403USA012084

PATIENT
  Sex: Female
  Weight: 54.42 kg

DRUGS (3)
  1. FOSAMAX [Suspect]
     Active Substance: ALENDRONATE SODIUM
     Indication: OSTEOPOROSIS
     Dosage: 10 MG, QD
     Route: 048
     Dates: start: 1996, end: 200011
  2. FOSAMAX [Suspect]
     Active Substance: ALENDRONATE SODIUM
     Dosage: 70 MG, QW
     Route: 048
     Dates: start: 200011, end: 200802
  3. ALENDRONATE SODIUM. [Suspect]
     Active Substance: ALENDRONATE SODIUM
     Indication: OSTEOPOROSIS
     Dosage: 70 MG, QW
     Route: 048
     Dates: start: 20080211, end: 200806

REACTIONS (27)
  - Coronary arterial stent insertion [Unknown]
  - Aspartate aminotransferase increased [Unknown]
  - Vomiting [Unknown]
  - Adverse event [Unknown]
  - Knee arthroplasty [Unknown]
  - Vomiting [Unknown]
  - Nausea [Unknown]
  - Back pain [Not Recovered/Not Resolved]
  - Intramedullary rod insertion [Unknown]
  - Acute myocardial infarction [Unknown]
  - Knee arthroplasty [Unknown]
  - Diarrhoea [Unknown]
  - Anaemia postoperative [Recovering/Resolving]
  - Drug intolerance [Unknown]
  - Hypocalcaemia [Recovering/Resolving]
  - Femur fracture [Unknown]
  - Open reduction of fracture [Unknown]
  - Femur fracture [Unknown]
  - Hypertension [Unknown]
  - Anxiety [Unknown]
  - Bursitis [Unknown]
  - Gastrooesophageal reflux disease [Unknown]
  - Hyponatraemia [Unknown]
  - Hypotension [Unknown]
  - Coronary artery occlusion [Unknown]
  - Hypercholesterolaemia [Unknown]
  - Loss of consciousness [Unknown]

NARRATIVE: CASE EVENT DATE: 1998
